FAERS Safety Report 20687196 (Version 2)
Quarter: 2022Q2

REPORT INFORMATION
  Report Type: Spontaneous
  Country: JP (occurrence: JP)
  Receive Date: 20220407
  Receipt Date: 20220414
  Transmission Date: 20220721
  Serious: Yes (Hospitalization, Other)
  Sender: FDA-Public Use
  Company Number: JP-ONO-2021JP032784

PATIENT
  Age: 7 Decade
  Sex: Male

DRUGS (8)
  1. KYPROLIS [Suspect]
     Active Substance: CARFILZOMIB
     Indication: Plasma cell myeloma
     Dosage: 70 MG/M2, QW
     Route: 065
     Dates: start: 20201110
  2. KYPROLIS [Suspect]
     Active Substance: CARFILZOMIB
     Dosage: 70 MG/M2, QW
     Route: 041
     Dates: start: 20211116, end: 20211123
  3. DEXAMETHASONE [Concomitant]
     Active Substance: DEXAMETHASONE
     Indication: Plasma cell myeloma
     Dosage: UNK
     Route: 065
  4. MIYA-BM [Concomitant]
     Active Substance: CLOSTRIDIUM BUTYRICUM SPORES STRAIN M-55
     Dosage: UNK
     Route: 065
  5. TAMSULOSIN HYDROCHLORIDE [Concomitant]
     Active Substance: TAMSULOSIN HYDROCHLORIDE
     Dosage: UNK
     Route: 065
  6. DUTASTERIDE [Concomitant]
     Active Substance: DUTASTERIDE
     Dosage: UNK
     Route: 065
  7. NEXIUM [Concomitant]
     Active Substance: ESOMEPRAZOLE MAGNESIUM
     Dosage: UNK
     Route: 065
  8. EYBELIS [Concomitant]
     Dosage: UNK
     Route: 047

REACTIONS (10)
  - Renal tubular necrosis [Recovering/Resolving]
  - Metabolic acidosis [Unknown]
  - Seizure [Unknown]
  - Altered state of consciousness [Unknown]
  - Respiratory failure [Unknown]
  - Thrombotic microangiopathy [Recovering/Resolving]
  - Tumour lysis syndrome [Recovering/Resolving]
  - Blood lactate dehydrogenase increased [Unknown]
  - Haemoptysis [Unknown]
  - Blood creatinine increased [Unknown]

NARRATIVE: CASE EVENT DATE: 20211124
